FAERS Safety Report 18923500 (Version 1)
Quarter: 2021Q1

REPORT INFORMATION
  Report Type: Spontaneous
  Country: US (occurrence: US)
  Receive Date: 20210222
  Receipt Date: 20210222
  Transmission Date: 20210420
  Serious: Yes (Hospitalization)
  Sender: FDA-Public Use
  Company Number: US-FERRINGPH-2020FE07833

PATIENT
  Age: 62 Year
  Sex: Female
  Weight: 83.45 kg

DRUGS (1)
  1. DDAVP [Suspect]
     Active Substance: DESMOPRESSIN ACETATE
     Indication: DIABETES INSIPIDUS
     Dosage: UNK
     Route: 065
     Dates: start: 1997

REACTIONS (6)
  - Out of specification product use [Unknown]
  - Illness [Unknown]
  - Accidental overdose [Unknown]
  - Recalled product administered [Unknown]
  - Blood sodium decreased [Unknown]
  - Nausea [Unknown]

NARRATIVE: CASE EVENT DATE: 201809
